FAERS Safety Report 10707107 (Version 1)
Quarter: 2015Q1

REPORT INFORMATION
  Report Type: Spontaneous
  Country: US (occurrence: None)
  Receive Date: 20150112
  Receipt Date: 20150112
  Transmission Date: 20150721
  Serious: No
  Sender: FDA-Public Use
  Company Number: None

PATIENT
  Age: 34 Year
  Sex: Female
  Weight: 58.97 kg

DRUGS (3)
  1. HONG HOA OIL [Suspect]
     Active Substance: HERBALS
     Indication: ARTHRALGIA
     Dosage: ONCE, APPLIED T A SURFACE, USUALLY THE SKIN
  2. METHYL SALICYLATE [Suspect]
     Active Substance: METHYL SALICYLATE
  3. TURPENTINE OIL [Suspect]
     Active Substance: TURPENTINE OIL

REACTIONS (1)
  - Rash [None]

NARRATIVE: CASE EVENT DATE: 20150105
